FAERS Safety Report 4731753-0 (Version None)
Quarter: 2005Q3

REPORT INFORMATION
  Report Type: 
  Country: None (occurrence: None)
  Receive Date: 20050802
  Receipt Date: 20050802
  Transmission Date: 20060218
  Serious: Yes (Life-Threatening, Hospitalization)
  Sender: FDA-Public Use
  Company Number: None

PATIENT
  Age: 52 Year
  Sex: Female
  Weight: 73.9363 kg

DRUGS (8)
  1. MIDAZOLAM 5 MG IV [Suspect]
     Indication: SEDATION
     Dosage: 5 MG IV OTO
     Route: 042
     Dates: start: 20050519
  2. FENTANYL [Suspect]
     Indication: SEDATION
     Dosage: 300 MCG IV OTO
     Route: 042
     Dates: start: 20050519
  3. CELLEBREX [Concomitant]
  4. METHOTREXATE [Concomitant]
  5. FOLIC ACID [Concomitant]
  6. PREVACID [Concomitant]
  7. FOSAMAX [Concomitant]
  8. ANCEF IG [Concomitant]

REACTIONS (5)
  - ASTHENIA [None]
  - CARDIO-RESPIRATORY ARREST [None]
  - CIRCULATORY COLLAPSE [None]
  - RASH ERYTHEMATOUS [None]
  - WHEEZING [None]
